FAERS Safety Report 14246892 (Version 3)
Quarter: 2019Q1

REPORT INFORMATION
  Report Type: Spontaneous
  Country: US (occurrence: US)
  Receive Date: 20171204
  Receipt Date: 20190305
  Transmission Date: 20190417
  Serious: Yes (Other)
  Sender: FDA-Public Use
  Company Number: US-PFIZER INC-2017514203

PATIENT
  Age: 40 Year
  Sex: Female
  Weight: 61.22 kg

DRUGS (1)
  1. DEPO-MEDROL [Suspect]
     Active Substance: METHYLPREDNISOLONE ACETATE
     Dosage: UNK
     Dates: start: 20170414

REACTIONS (17)
  - Pigmentation disorder [Unknown]
  - Burning sensation [Unknown]
  - Muscular weakness [Unknown]
  - Peripheral swelling [Unknown]
  - Hypoaesthesia [Unknown]
  - Limb discomfort [Unknown]
  - Bone disorder [Unknown]
  - Atrophy [Unknown]
  - Rash [Unknown]
  - Heart rate increased [Unknown]
  - Gait disturbance [Unknown]
  - Neuropathy peripheral [Unknown]
  - Product administration error [Unknown]
  - Erythromelalgia [Unknown]
  - Vein disorder [Unknown]
  - Pyrexia [Unknown]
  - Pain [Unknown]

NARRATIVE: CASE EVENT DATE: 2017
